FAERS Safety Report 25845515 (Version 2)
Quarter: 2025Q4

REPORT INFORMATION
  Report Type: Spontaneous
  Country: US (occurrence: US)
  Receive Date: 20250925
  Receipt Date: 20251031
  Transmission Date: 20260118
  Serious: Yes (Hospitalization, Other)
  Sender: BRISTOL-MYERS SQUIBB COMPANY
  Company Number: US-BRISTOL-MYERS SQUIBB COMPANY-2025-131030

PATIENT
  Age: 72 Year
  Sex: Female

DRUGS (1)
  1. LENALIDOMIDE [Suspect]
     Active Substance: LENALIDOMIDE
     Indication: Anxiety disorder
     Dosage: TAKE 1 WHOLE CAPSULE BY MOUTH WITH WATER AT THE SAME TIME EVERY DAY ON DAYS 1-21 OF EACH 28 DAY CYCLE
     Route: 048

REACTIONS (4)
  - Internal haemorrhage [Not Recovered/Not Resolved]
  - Ulcer haemorrhage [Unknown]
  - Pain in extremity [Unknown]
  - Off label use [Unknown]
